FAERS Safety Report 18288913 (Version 2)
Quarter: 2021Q1

REPORT INFORMATION
  Report Type: Spontaneous
  Country: US (occurrence: US)
  Receive Date: 20200921
  Receipt Date: 20210331
  Transmission Date: 20210419
  Serious: No
  Sender: FDA-Public Use
  Company Number: US-PFIZER INC-2020360399

PATIENT
  Age: 53 Year
  Sex: Female

DRUGS (1)
  1. XELJANZ XR [Suspect]
     Active Substance: TOFACITINIB CITRATE
     Indication: RHEUMATOID ARTHRITIS
     Dosage: 11 MG, DAILY
     Route: 048
     Dates: start: 2018

REACTIONS (7)
  - Social avoidant behaviour [Unknown]
  - Therapeutic response unexpected [Unknown]
  - Crying [Unknown]
  - Depressed mood [Recovered/Resolved]
  - Bone pain [Unknown]
  - Pain [Recovered/Resolved]
  - Sensitivity to weather change [Unknown]
